FAERS Safety Report 12648842 (Version 1)
Quarter: 2016Q3

REPORT INFORMATION
  Report Type: Spontaneous
  Country: US (occurrence: US)
  Receive Date: 20160812
  Receipt Date: 20160812
  Transmission Date: 20161109
  Serious: No
  Sender: FDA-Public Use
  Company Number: US-PFIZER INC-2016382836

PATIENT
  Age: 54 Year
  Sex: Female

DRUGS (1)
  1. EMBEDA [Suspect]
     Active Substance: MORPHINE SULFATE\NALTREXONE HYDROCHLORIDE

REACTIONS (5)
  - Balance disorder [Unknown]
  - Insomnia [Unknown]
  - Paraesthesia [Unknown]
  - Anxiety [Unknown]
  - Feeling abnormal [Unknown]
